FAERS Safety Report 24311926 (Version 2)
Quarter: 2024Q4

REPORT INFORMATION
  Report Type: Spontaneous
  Country: GB (occurrence: GB)
  Receive Date: 20240912
  Receipt Date: 20241025
  Transmission Date: 20250115
  Serious: Yes (Death)
  Sender: MYLAN
  Company Number: GB-MYLANLABS-2024M1083163

PATIENT
  Sex: Male
  Weight: 145.6 kg

DRUGS (9)
  1. CLOZARIL [Suspect]
     Active Substance: CLOZAPINE
     Indication: Schizophrenia
     Dosage: 500 MILLIGRAM, PM (NOCTE)
     Route: 048
     Dates: start: 20100914
  2. VENLAFAXINE SR [Concomitant]
     Indication: Depression
     Dosage: 300 MILLIGRAM, AM (MANE) (START DATE: 2015)
     Route: 048
  3. ARIPIPRAZOLE [Concomitant]
     Active Substance: ARIPIPRAZOLE
     Indication: Schizophrenia
     Dosage: 10 MILLIGRAM, AM (MANE) (START DATE: 2013)
     Route: 048
  4. LITHIUM CARBONATE [Concomitant]
     Active Substance: LITHIUM CARBONATE
     Indication: Depression
     Dosage: 1000 MILLIGRAM, PM (NOCTE) (START DATE: 2020)
     Route: 048
  5. METFORMIN [Concomitant]
     Active Substance: METFORMIN HYDROCHLORIDE
     Indication: Diabetes mellitus
     Dosage: 1 GRAM, BID (BD)
     Route: 048
  6. PIOGLITAZONE [Concomitant]
     Active Substance: PIOGLITAZONE
     Indication: Diabetes mellitus
     Dosage: 30 MILLIGRAM, AM (MANE) (START DATE: 2020)
     Route: 048
  7. LEVOTHYROXINE [Concomitant]
     Active Substance: LEVOTHYROXINE
     Indication: Hypothyroidism
     Dosage: 25 MICROGRAM, AM (MANE) (START DATE: 2015)
     Route: 048
  8. ATORVASTATIN [Concomitant]
     Active Substance: ATORVASTATIN
     Indication: Hypercholesterolaemia
     Dosage: 40 MILLIGRAM, PM (NOCTE)
     Route: 048
  9. BEZAFIBRATE [Concomitant]
     Active Substance: BEZAFIBRATE
     Indication: Hypercholesterolaemia
     Dosage: 400 MILLIGRAM, PM (NOCTE) (START DATE: 2020)
     Route: 048

REACTIONS (3)
  - Acute respiratory distress syndrome [Fatal]
  - Diarrhoea [Unknown]
  - Vomiting [Unknown]
